FAERS Safety Report 4375086-3 (Version None)
Quarter: 2004Q2

REPORT INFORMATION
  Report Type: 
  Country: None (occurrence: None)
  Receive Date: 20040603
  Receipt Date: 20040521
  Transmission Date: 20050107
  Serious: Yes (Hospitalization, Other)
  Sender: FDA-Public Use
  Company Number: BE-JNJFOC-20040304147

PATIENT
  Sex: Male
  Weight: 5 kg

DRUGS (2)
  1. CISAPRIDE (CISAPRIDE) SUSPENSION [Suspect]
     Indication: GASTROOESOPHAGEAL REFLUX DISEASE
     Dosage: 1.2 MG, 4 IN 1 DAY
     Dates: start: 20030530, end: 20030610
  2. OMEPRAZOLE [Concomitant]

REACTIONS (1)
  - DRUG INEFFECTIVE [None]
